FAERS Safety Report 10370448 (Version 1)
Quarter: 2014Q3

REPORT INFORMATION
  Report Type: Spontaneous
  Country: US (occurrence: None)
  Receive Date: 20140807
  Receipt Date: 20140807
  Transmission Date: 20150326
  Serious: Yes (Other)
  Sender: FDA-Public Use
  Company Number: None

PATIENT
  Age: 63 Year
  Sex: Female

DRUGS (2)
  1. SOVALDI [Suspect]
     Active Substance: SOFOSBUVIR
     Indication: HEPATITIS C
     Route: 048
     Dates: start: 20140216
  2. RIBAVIRIN 200 MG [Suspect]
     Active Substance: RIBAVIRIN
     Route: 048

REACTIONS (5)
  - Nausea [None]
  - Weight increased [None]
  - Fatigue [None]
  - Depression [None]
  - Constipation [None]

NARRATIVE: CASE EVENT DATE: 201407
